FAERS Safety Report 24761401 (Version 1)
Quarter: 2024Q4

REPORT INFORMATION
  Report Type: Spontaneous
  Country: US (occurrence: US)
  Receive Date: 20241220
  Receipt Date: 20241220
  Transmission Date: 20250115
  Serious: Yes (Other)
  Sender: NOVO NORDISK
  Company Number: US-NOVOPROD-1337915

PATIENT
  Sex: Male

DRUGS (1)
  1. OZEMPIC [Suspect]
     Active Substance: SEMAGLUTIDE
     Indication: Type 2 diabetes mellitus
     Dosage: 0.25 MG
     Route: 058
     Dates: start: 20241114

REACTIONS (7)
  - Gait inability [Unknown]
  - Muscle spasms [Unknown]
  - Insomnia [Unknown]
  - Dysphagia [Unknown]
  - Neck pain [Unknown]
  - Fatigue [Unknown]
  - Hypersensitivity [Unknown]
